FAERS Safety Report 12365905 (Version 1)
Quarter: 2016Q2

REPORT INFORMATION
  Report Type: Report from Study
  Country: CA (occurrence: CA)
  Receive Date: 20160513
  Receipt Date: 20160513
  Transmission Date: 20160815
  Serious: Yes (Other)
  Sender: FDA-Public Use
  Company Number: CA-AMGEN-CANSL2016059306

PATIENT
  Age: 76 Year
  Sex: Female

DRUGS (1)
  1. ENBREL [Suspect]
     Active Substance: ETANERCEPT
     Indication: RHEUMATOID ARTHRITIS
     Dosage: 25 MG, UNK
     Route: 065
     Dates: start: 20020913

REACTIONS (5)
  - Rheumatoid arthritis [Unknown]
  - Abdominal pain [Unknown]
  - Weight abnormal [Unknown]
  - Haemoglobin decreased [Recovering/Resolving]
  - Intestinal resection [Unknown]
